FAERS Safety Report 7946706-9 (Version None)
Quarter: 2011Q4

REPORT INFORMATION
  Report Type: 
  Country: None (occurrence: None)
  Receive Date: 20111129
  Receipt Date: 20111123
  Transmission Date: 20120403
  Serious: No
  Sender: FDA-Public Use
  Company Number: US-PFIZER INC-2011287614

PATIENT
  Sex: Male
  Weight: 68 kg

DRUGS (5)
  1. MINOXIDIL [Concomitant]
     Indication: HYPERTENSION
     Dosage: UNK
  2. ENALAPRIL [Concomitant]
     Indication: HYPERTENSION
     Dosage: UNK
  3. CELEBREX [Suspect]
     Indication: ARTHRITIS
     Dosage: 200 MG, 2X/DAY
     Route: 048
     Dates: end: 20110201
  4. ATENOLOL [Concomitant]
     Indication: HYPERTENSION
     Dosage: UNK
  5. CELEBREX [Suspect]
     Indication: ARTHRALGIA

REACTIONS (1)
  - DRUG INEFFECTIVE [None]
